FAERS Safety Report 14367869 (Version 1)
Quarter: 2018Q1

REPORT INFORMATION
  Report Type: Spontaneous
  Country: NL (occurrence: NL)
  Receive Date: 20180108
  Receipt Date: 20180108
  Transmission Date: 20180509
  Serious: Yes (Disabling)
  Sender: FDA-Public Use
  Company Number: None

PATIENT
  Sex: Female
  Weight: 70 kg

DRUGS (2)
  1. CUTIVATE [Suspect]
     Active Substance: FLUTICASONE PROPIONATE
  2. HYDROCORTISONE. [Suspect]
     Active Substance: HYDROCORTISONE
     Indication: ECZEMA
     Dosage: ?          QUANTITY:1 TUBE;?
     Route: 061
     Dates: start: 20080101, end: 20170129

REACTIONS (4)
  - Skin burning sensation [None]
  - Skin exfoliation [None]
  - Infection [None]
  - Oedema [None]

NARRATIVE: CASE EVENT DATE: 20170129
